FAERS Safety Report 16658717 (Version 2)
Quarter: 2019Q3

REPORT INFORMATION
  Report Type: Spontaneous
  Country: US (occurrence: US)
  Receive Date: 20190801
  Receipt Date: 20190819
  Transmission Date: 20191004
  Serious: Yes (Other)
  Sender: FDA-Public Use
  Company Number: US-UPSHER-SMITH LABORATORIES, LLC-2019USL00554

PATIENT
  Age: 77 Year
  Sex: Female
  Weight: 57.14 kg

DRUGS (2)
  1. PREVALITE [Suspect]
     Active Substance: CHOLESTYRAMINE
     Indication: GASTROINTESTINAL MOTILITY DISORDER
     Dosage: 4 G, ONCE
     Route: 048
     Dates: start: 201612, end: 201612
  2. LOMOTIL [Concomitant]
     Active Substance: ATROPINE SULFATE\DIPHENOXYLATE HYDROCHLORIDE
     Dosage: 2 PILLS, 4X/DAY

REACTIONS (3)
  - Drug ineffective for unapproved indication [Recovered/Resolved]
  - Dyspnoea [Recovered/Resolved]
  - Choking [Recovered/Resolved]

NARRATIVE: CASE EVENT DATE: 201612
